FAERS Safety Report 21194437 (Version 1)
Quarter: 2022Q3

REPORT INFORMATION
  Report Type: Spontaneous
  Country: GB (occurrence: GB)
  Receive Date: 20220810
  Receipt Date: 20220810
  Transmission Date: 20221026
  Serious: Yes (Disabling, Other)
  Sender: FDA-Public Use
  Company Number: None

PATIENT
  Age: 61 Year
  Sex: Female
  Weight: 104.0 kg

DRUGS (7)
  1. APIXABAN [Suspect]
     Active Substance: APIXABAN
     Indication: Dyspnoea
     Route: 048
     Dates: start: 20220721
  2. INDAPAMIDE [Concomitant]
     Active Substance: INDAPAMIDE
     Dosage: 2.5MG
     Route: 048
     Dates: start: 20220509, end: 20220516
  3. MORPHINE SULFATE [Concomitant]
     Active Substance: MORPHINE SULFATE
     Dosage: IN THE AM AND ONE NOCTE 12 HOURS APART, MODIFIED-RELEASE FILM-COATED TABLET
     Route: 048
     Dates: start: 20220708
  4. PREDNISOLONE [Concomitant]
     Active Substance: PREDNISOLONE
     Dosage: TAKE AS DIRECTED, REDUCTION 10MG FOR 4 WEEKS THEN REVIEW WI
     Route: 048
     Dates: start: 20220708
  5. RISEDRONATE SODIUM [Concomitant]
     Active Substance: RISEDRONATE SODIUM
     Dosage: MUST BE TAKEN AT LEAST 30 MINUTES BEFORE THE FIRST FOOD, BEVERAGE, OR MEDICINA
     Route: 048
     Dates: start: 20220708
  6. RIVAROXABAN [Concomitant]
     Active Substance: RIVAROXABAN
     Dosage: SCAN DUE ON 29-JUL-022
     Route: 048
     Dates: start: 20220725
  7. APIXABAN [Suspect]
     Active Substance: APIXABAN
     Indication: Dyspnoea
     Route: 048
     Dates: start: 20220721

REACTIONS (1)
  - Headache [Unknown]

NARRATIVE: CASE EVENT DATE: 20220724
